FAERS Safety Report 4956530-7 (Version None)
Quarter: 2006Q1

REPORT INFORMATION
  Report Type: 
  Country: None (occurrence: None)
  Receive Date: 20060329
  Receipt Date: 20051215
  Transmission Date: 20060701
  Serious: Yes (Hospitalization)
  Sender: FDA-Public Use
  Company Number: US-MERCK-0512USA02648

PATIENT
  Age: 50 Year
  Sex: Female
  Weight: 61 kg

DRUGS (9)
  1. VIOXX [Suspect]
     Indication: ARTHRITIS
     Route: 048
     Dates: start: 20021129, end: 20031123
  2. NORVASC [Concomitant]
     Indication: CARDIAC DISORDER
     Route: 065
     Dates: start: 20020109, end: 20040909
  3. NORVASC [Concomitant]
     Indication: HYPERTENSION
     Route: 065
     Dates: start: 20020109, end: 20040909
  4. NITROGLYCERIN [Concomitant]
     Indication: HYPERTENSION
     Route: 065
     Dates: start: 19950101
  5. PREVACID [Concomitant]
     Indication: ULCER
     Route: 065
  6. PREVACID [Concomitant]
     Indication: HYPERCHLORHYDRIA
     Route: 065
  7. ALLEGRA [Concomitant]
     Indication: HYPERSENSITIVITY
     Route: 065
  8. PROVENTIL [Concomitant]
     Indication: ASTHMA
     Route: 065
  9. ALBUTEROL [Concomitant]
     Route: 065

REACTIONS (5)
  - BLOOD CHOLESTEROL INCREASED [None]
  - CARDIAC DISORDER [None]
  - MYOCARDIAL INFARCTION [None]
  - OSTEOARTHRITIS [None]
  - SWELLING [None]
